FAERS Safety Report 11123515 (Version 7)
Quarter: 2015Q3

REPORT INFORMATION
  Report Type: Report from Study
  Country: US (occurrence: US)
  Receive Date: 20150519
  Receipt Date: 20150828
  Transmission Date: 20151125
  Serious: Yes (Other)
  Sender: FDA-Public Use
  Company Number: PHEH2015US006529

PATIENT
  Age: 54 Year
  Sex: Female

DRUGS (2)
  1. CLOZARIL [Suspect]
     Active Substance: CLOZAPINE
     Indication: PARANOIA
     Dosage: 325 MG, HS
     Route: 048
     Dates: start: 2003
  2. CLOZARIL [Suspect]
     Active Substance: CLOZAPINE
     Indication: SCHIZOAFFECTIVE DISORDER BIPOLAR TYPE

REACTIONS (8)
  - Ovarian cancer stage III [Unknown]
  - Paranoia [Unknown]
  - White blood cell count decreased [Unknown]
  - White blood cell count decreased [Recovered/Resolved]
  - Ovarian cancer metastatic [Unknown]
  - Off label use [Unknown]
  - Platelet count decreased [Unknown]
  - Neutrophil count decreased [Unknown]

NARRATIVE: CASE EVENT DATE: 20150813
